FAERS Safety Report 18628090 (Version 1)
Quarter: 2020Q4

REPORT INFORMATION
  Report Type: Spontaneous
  Country: US (occurrence: US)
  Receive Date: 20201217
  Receipt Date: 20201217
  Transmission Date: 20210114
  Serious: Yes (Hospitalization)
  Sender: FDA-Public Use
  Company Number: None

PATIENT
  Age: 69 Year
  Sex: Male
  Weight: 111.1 kg

DRUGS (3)
  1. DEXAMETHASONE 80MG [Suspect]
     Active Substance: DEXAMETHASONE
     Dates: end: 20201023
  2. DARATUMUMAB (791647)1920MG [Suspect]
     Active Substance: DARATUMUMAB
     Dates: end: 20201023
  3. LENALIDOMIDE 210MG [Concomitant]
     Dates: end: 20201105

REACTIONS (5)
  - Tenderness [None]
  - Balance disorder [None]
  - Fall [None]
  - Swelling [None]
  - Pain [None]

NARRATIVE: CASE EVENT DATE: 20201105
